FAERS Safety Report 5828758-5 (Version None)
Quarter: 2008Q3

REPORT INFORMATION
  Report Type: 
  Country: None (occurrence: None)
  Receive Date: 20080729
  Receipt Date: 20080729
  Transmission Date: 20090109
  Serious: Yes (Hospitalization)
  Sender: FDA-Public Use
  Company Number: None

PATIENT
  Age: 65 Year
  Sex: Male
  Weight: 97.1 kg

DRUGS (1)
  1. WARFARIN SODIUM [Suspect]
     Indication: ANTICOAGULANT THERAPY
     Dosage: 8 MG OTHER PO
     Route: 048
     Dates: start: 20080307, end: 20080719

REACTIONS (3)
  - INTERNATIONAL NORMALISED RATIO ABNORMAL [None]
  - MELAENA [None]
  - ULCER HAEMORRHAGE [None]
